FAERS Safety Report 7178929-3 (Version None)
Quarter: 2010Q4

REPORT INFORMATION
  Report Type: 
  Country: None (occurrence: None)
  Receive Date: 20101217
  Receipt Date: 20101217
  Transmission Date: 20110411
  Serious: Yes (Other)
  Sender: FDA-Public Use
  Company Number: None

PATIENT
  Age: 2 Year
  Sex: Male
  Weight: 14.0615 kg

DRUGS (1)
  1. CEFDINIR [Suspect]
     Indication: OTITIS MEDIA
     Dosage: 6 ML ORAL PO
     Route: 048
     Dates: start: 20101205, end: 20101210

REACTIONS (3)
  - ABNORMAL BEHAVIOUR [None]
  - CRYING [None]
  - INTENTIONAL SELF-INJURY [None]
